FAERS Safety Report 17880640 (Version 1)
Quarter: 2020Q2

REPORT INFORMATION
  Report Type: Spontaneous
  Country: CA (occurrence: CA)
  Receive Date: 20200610
  Receipt Date: 20200610
  Transmission Date: 20200714
  Serious: Yes (Death, Hospitalization)
  Sender: FDA-Public Use
  Company Number: CA-PFIZER INC-2020225541

PATIENT
  Age: 60 Year
  Sex: Male

DRUGS (1)
  1. CARBOPLATIN. [Suspect]
     Active Substance: CARBOPLATIN
     Dosage: 748 MG, MONTHLY
     Route: 013

REACTIONS (10)
  - Weight decreased [Recovering/Resolving]
  - Taste disorder [Recovered/Resolved]
  - Nausea [Unknown]
  - Quality of life decreased [Recovered/Resolved]
  - Off label use [Unknown]
  - Neoplasm progression [Fatal]
  - General physical health deterioration [Unknown]
  - Dysgeusia [Recovered/Resolved]
  - Product use issue [Unknown]
  - Hypophagia [Recovered/Resolved]
